FAERS Safety Report 9662939 (Version 1)
Quarter: 2013Q4

REPORT INFORMATION
  Report Type: Spontaneous
  Country: US (occurrence: US)
  Receive Date: 20131031
  Receipt Date: 20131031
  Transmission Date: 20140711
  Serious: No
  Sender: FDA-Public Use
  Company Number: US-PURDUE-USA-2011-0074539

PATIENT
  Sex: Male

DRUGS (1)
  1. OXYCONTIN (NDA 22-272) [Suspect]
     Indication: PAIN

REACTIONS (9)
  - Medication residue present [Unknown]
  - Contusion [Unknown]
  - Dry eye [Unknown]
  - Migraine [Unknown]
  - Nausea [Unknown]
  - Abdominal pain upper [Unknown]
  - Dehydration [Unknown]
  - Dry mouth [Unknown]
  - Inadequate analgesia [Unknown]
